FAERS Safety Report 7088546-1 (Version None)
Quarter: 2010Q4

REPORT INFORMATION
  Report Type: 
  Country: None (occurrence: None)
  Receive Date: 20101108
  Receipt Date: 20101028
  Transmission Date: 20110411
  Serious: Yes (Hospitalization)
  Sender: FDA-Public Use
  Company Number: DE-ROCHE-738773

PATIENT

DRUGS (1)
  1. PEGASYS [Suspect]
     Dosage: TREATMENT FOR APPROX. 3 MONTHS
     Route: 065

REACTIONS (2)
  - ASCITES [None]
  - HEPATIC CIRRHOSIS [None]
